FAERS Safety Report 6113005-X (Version None)
Quarter: 2009Q1

REPORT INFORMATION
  Report Type: 
  Country: None (occurrence: None)
  Receive Date: 20090312
  Receipt Date: 20090305
  Transmission Date: 20090719
  Serious: Yes (Hospitalization, Other)
  Sender: FDA-Public Use
  Company Number: B0415353A

PATIENT
  Age: 66 Year
  Sex: Male
  Weight: 75 kg

DRUGS (10)
  1. AVANDIA [Suspect]
     Indication: DIABETES MELLITUS
     Dosage: 4MG UNKNOWN
     Route: 048
     Dates: start: 20051210, end: 20060101
  2. PRAVACHOL [Suspect]
     Indication: METABOLIC DISORDER
     Dates: end: 20051223
  3. ACTOS [Suspect]
     Indication: DRUG USE FOR UNKNOWN INDICATION
     Route: 048
     Dates: start: 20051206, end: 20060115
  4. EZETROL [Suspect]
     Indication: DIABETES MELLITUS
     Dates: start: 20051107, end: 20051223
  5. LIPIODOL [Suspect]
     Indication: METABOLIC DISORDER
     Dates: start: 20051117, end: 20051223
  6. MICARDIS [Suspect]
     Dosage: 80MGD PER DAY
  7. FENOFIBRATE [Suspect]
     Dates: start: 20051117, end: 20051123
  8. AMARYL [Concomitant]
  9. RAMIPRIL [Concomitant]
  10. DIAFORMIN [Concomitant]

REACTIONS (15)
  - ALANINE AMINOTRANSFERASE INCREASED [None]
  - ANAEMIA [None]
  - ASPARTATE AMINOTRANSFERASE INCREASED [None]
  - BLOOD ALKALINE PHOSPHATASE INCREASED [None]
  - BLOOD BILIRUBIN INCREASED [None]
  - BLOOD CHOLESTEROL INCREASED [None]
  - BLOOD LACTATE DEHYDROGENASE INCREASED [None]
  - BLOOD TRIGLYCERIDES ABNORMAL [None]
  - BLOOD UREA INCREASED [None]
  - DECREASED APPETITE [None]
  - GAMMA-GLUTAMYLTRANSFERASE INCREASED [None]
  - HEPATIC FAILURE [None]
  - NAUSEA [None]
  - PROTEIN TOTAL DECREASED [None]
  - WEIGHT DECREASED [None]
